FAERS Safety Report 15745914 (Version 1)
Quarter: 2018Q4

REPORT INFORMATION
  Report Type: Spontaneous
  Country: US (occurrence: US)
  Receive Date: 20181220
  Receipt Date: 20181220
  Transmission Date: 20190205
  Serious: Yes (Life-Threatening, Other)
  Sender: FDA-Public Use
  Company Number: US-FRESENIUS KABI-FK201812947

PATIENT
  Age: 71 Year
  Sex: Female
  Weight: 91.5 kg

DRUGS (2)
  1. MIDAZOLAM 5 MG / ML [Suspect]
     Active Substance: MIDAZOLAM HYDROCHLORIDE
     Indication: SEDATION
     Route: 042
     Dates: start: 20181211, end: 20181211
  2. FENTANYL. [Suspect]
     Active Substance: FENTANYL
     Indication: SEDATION
     Route: 042
     Dates: start: 20181211, end: 20181211

REACTIONS (1)
  - Apnoea [Recovered/Resolved]

NARRATIVE: CASE EVENT DATE: 20181211
